FAERS Safety Report 4865426-0 (Version None)
Quarter: 2005Q4

REPORT INFORMATION
  Report Type: 
  Country: None (occurrence: None)
  Receive Date: 20051221
  Receipt Date: 20051221
  Transmission Date: 20060501
  Serious: Yes (Other)
  Sender: FDA-Public Use
  Company Number: None

PATIENT
  Age: 73 Year
  Sex: Female
  Weight: 77.1115 kg

DRUGS (2)
  1. INDERAL [Suspect]
     Indication: ARRHYTHMIA
     Dosage: 2 X 40 MG PER DAY
  2. INDERAL [Suspect]
     Indication: TACHYCARDIA
     Dosage: 2 X 40 MG PER DAY

REACTIONS (7)
  - ASTHENIA [None]
  - FEELING ABNORMAL [None]
  - HEART RATE IRREGULAR [None]
  - NAUSEA [None]
  - PALPITATIONS [None]
  - PHARMACEUTICAL PRODUCT COMPLAINT [None]
  - TOOTH DISORDER [None]
